FAERS Safety Report 23387963 (Version 1)
Quarter: 2024Q1

REPORT INFORMATION
  Report Type: Spontaneous
  Country: US (occurrence: None)
  Receive Date: 20240109
  Receipt Date: 20240109
  Transmission Date: 20240410
  Serious: Yes (Life-Threatening)
  Sender: FDA-Public Use
  Company Number: None

PATIENT
  Age: 28 Year
  Sex: Female
  Weight: 99.7 kg

DRUGS (7)
  1. VEDOLIZUMAB [Suspect]
     Active Substance: VEDOLIZUMAB
     Dates: start: 20231030, end: 20231211
  2. ALLEGRA [Concomitant]
     Active Substance: FEXOFENADINE HYDROCHLORIDE
  3. MIRENA [Concomitant]
     Active Substance: LEVONORGESTREL
  4. FLUOXETINE [Concomitant]
     Active Substance: FLUOXETINE HYDROCHLORIDE
  5. SPIRONOLACTONE [Concomitant]
     Active Substance: SPIRONOLACTONE
  6. VALTREX [Concomitant]
     Active Substance: VALACYCLOVIR HYDROCHLORIDE
  7. GLYCOPYRROLATE [Concomitant]
     Active Substance: GLYCOPYRROLATE

REACTIONS (20)
  - Choking [None]
  - Cough [None]
  - Dyspnoea [None]
  - Respiratory distress [None]
  - Urinary incontinence [None]
  - Loss of consciousness [None]
  - Eructation [None]
  - Pruritus [None]
  - Hyperhidrosis [None]
  - Feeling hot [None]
  - Nausea [None]
  - Vomiting [None]
  - Swelling face [None]
  - Erythema [None]
  - Conjunctival haemorrhage [None]
  - Headache [None]
  - Hypersensitivity [None]
  - Anaphylactic reaction [None]
  - Seasonal allergy [None]
  - Obstructive airways disorder [None]

NARRATIVE: CASE EVENT DATE: 20231225
